APPROVED DRUG PRODUCT: LIRAGLUTIDE
Active Ingredient: LIRAGLUTIDE
Strength: 18MG/3ML (6MG/ML)
Dosage Form/Route: SOLUTION;SUBCUTANEOUS
Application: A215421 | Product #001 | TE Code: AP1
Applicant: LUPIN LTD
Approved: Jul 22, 2025 | RLD: No | RS: No | Type: RX